FAERS Safety Report 5870653-X (Version None)
Quarter: 2008Q3

REPORT INFORMATION
  Report Type: 
  Country: None (occurrence: None)
  Receive Date: 20080904
  Receipt Date: 20080827
  Transmission Date: 20090109
  Serious: Yes (Other)
  Sender: FDA-Public Use
  Company Number: PHHY2008AR18121

PATIENT
  Age: 65 Year
  Sex: Female

DRUGS (4)
  1. ACLASTA [Suspect]
     Dosage: 1 AMP
     Route: 051
     Dates: start: 20080505
  2. CALCIUM [Concomitant]
  3. ASPIRIN [Concomitant]
  4. FLUOXETINE [Concomitant]

REACTIONS (4)
  - ABASIA [None]
  - BLOOD CREATINE PHOSPHOKINASE INCREASED [None]
  - BONE PAIN [None]
  - PAIN [None]
